FAERS Safety Report 13507665 (Version 1)
Quarter: 2017Q2

REPORT INFORMATION
  Report Type: Report from Study
  Country: US (occurrence: US)
  Receive Date: 20170503
  Receipt Date: 20170503
  Transmission Date: 20170830
  Serious: Yes (Other)
  Sender: FDA-Public Use
  Company Number: US-UCBSA-2017016471

PATIENT
  Sex: Male

DRUGS (1)
  1. CERTOLIZUMAB PEGOL [Suspect]
     Active Substance: CERTOLIZUMAB PEGOL
     Indication: CROHN^S DISEASE
     Dosage: 400 MG, EV 4 WEEKS (NDC: 50474-710-79)
     Dates: start: 20100831, end: 201602

REACTIONS (3)
  - Functional gastrointestinal disorder [Recovered/Resolved]
  - Disturbance in attention [Recovered/Resolved]
  - Cerebral disorder [Recovered/Resolved]

NARRATIVE: CASE EVENT DATE: 2016
